FAERS Safety Report 25318035 (Version 1)
Quarter: 2025Q2

REPORT INFORMATION
  Report Type: Report from Study
  Country: US (occurrence: US)
  Receive Date: 20250515
  Receipt Date: 20250515
  Transmission Date: 20250716
  Serious: Yes (Death, Hospitalization)
  Sender: MYLAN
  Company Number: US-MYLANLABS-2025M1041004

PATIENT
  Age: 69 Year
  Sex: Male

DRUGS (18)
  1. VANCOMYCIN [Suspect]
     Active Substance: VANCOMYCIN
     Indication: Staphylococcal infection
  2. VANCOMYCIN [Suspect]
     Active Substance: VANCOMYCIN
     Indication: Haematological infection
     Route: 065
  3. VANCOMYCIN [Suspect]
     Active Substance: VANCOMYCIN
     Indication: Skin infection
     Route: 065
  4. VANCOMYCIN [Suspect]
     Active Substance: VANCOMYCIN
     Indication: Endocarditis staphylococcal
  5. VANCOMYCIN [Suspect]
     Active Substance: VANCOMYCIN
     Indication: Pneumonia staphylococcal
  6. VANCOMYCIN [Suspect]
     Active Substance: VANCOMYCIN
     Indication: Central nervous system bacterial infection
  7. DAPTOMYCIN [Suspect]
     Active Substance: DAPTOMYCIN
     Indication: Staphylococcal infection
  8. DAPTOMYCIN [Suspect]
     Active Substance: DAPTOMYCIN
     Indication: Haematological infection
     Route: 065
  9. DAPTOMYCIN [Suspect]
     Active Substance: DAPTOMYCIN
     Indication: Skin infection
     Route: 065
  10. DAPTOMYCIN [Suspect]
     Active Substance: DAPTOMYCIN
     Indication: Endocarditis staphylococcal
  11. DAPTOMYCIN [Suspect]
     Active Substance: DAPTOMYCIN
     Indication: Pneumonia staphylococcal
  12. DAPTOMYCIN [Suspect]
     Active Substance: DAPTOMYCIN
     Indication: Central nervous system bacterial infection
  13. CEFTAROLINE [Suspect]
     Active Substance: CEFTAROLINE
     Indication: Staphylococcal infection
  14. CEFTAROLINE [Suspect]
     Active Substance: CEFTAROLINE
     Indication: Haematological infection
     Route: 065
  15. CEFTAROLINE [Suspect]
     Active Substance: CEFTAROLINE
     Indication: Skin infection
     Route: 065
  16. CEFTAROLINE [Suspect]
     Active Substance: CEFTAROLINE
     Indication: Endocarditis staphylococcal
  17. CEFTAROLINE [Suspect]
     Active Substance: CEFTAROLINE
     Indication: Pneumonia staphylococcal
  18. CEFTAROLINE [Suspect]
     Active Substance: CEFTAROLINE
     Indication: Central nervous system bacterial infection

REACTIONS (1)
  - Drug ineffective [Fatal]
